FAERS Safety Report 5701627-7 (Version None)
Quarter: 2008Q2

REPORT INFORMATION
  Report Type: 
  Country: None (occurrence: None)
  Receive Date: 20080409
  Receipt Date: 20080409
  Transmission Date: 20081010
  Serious: Yes (Other)
  Sender: FDA-Public Use
  Company Number: None

PATIENT
  Age: 59 Year
  Sex: Female
  Weight: 70.3075 kg

DRUGS (1)
  1. VYTORIN [Suspect]
     Indication: BLOOD CHOLESTEROL INCREASED
     Dosage: 90 DAYS  1 A DAY  PO
     Route: 048
     Dates: start: 20030102, end: 20080302

REACTIONS (3)
  - ARTHRALGIA [None]
  - BACK PAIN [None]
  - SLEEP DISORDER [None]
